FAERS Safety Report 20586717 (Version 2)
Quarter: 2022Q1

REPORT INFORMATION
  Report Type: Spontaneous
  Country: JP (occurrence: JP)
  Receive Date: 20220313
  Receipt Date: 20220321
  Transmission Date: 20220423
  Serious: Yes (Hospitalization, Other)
  Sender: FDA-Public Use
  Company Number: JP-KYOWAKIRIN-2022AKK003185

PATIENT

DRUGS (6)
  1. PEGFILGRASTIM [Suspect]
     Active Substance: PEGFILGRASTIM
     Indication: Product used for unknown indication
     Dosage: UNK
     Route: 058
  2. RITUXIMAB [Concomitant]
     Active Substance: RITUXIMAB
     Indication: Lymphoma
     Dosage: UNK
     Route: 041
  3. CYCLOPHOSPHAMIDE [Concomitant]
     Active Substance: CYCLOPHOSPHAMIDE
     Indication: Lymphoma
     Dosage: UNK
     Route: 041
  4. DOXORUBICIN HYDROCHLORIDE [Concomitant]
     Active Substance: DOXORUBICIN HYDROCHLORIDE
     Indication: Lymphoma
     Dosage: UNK
     Route: 041
  5. VINCRISTINE SULFATE [Concomitant]
     Active Substance: VINCRISTINE SULFATE
     Indication: Lymphoma
     Dosage: UNK
     Route: 041
  6. PREDNISOLONE [Concomitant]
     Active Substance: PREDNISOLONE
     Indication: Lymphoma
     Dosage: UNK
     Route: 048

REACTIONS (2)
  - Aortitis [Recovering/Resolving]
  - COVID-19 [Recovering/Resolving]

NARRATIVE: CASE EVENT DATE: 20220101
